FAERS Safety Report 8930477 (Version 1)
Quarter: 2012Q4

REPORT INFORMATION
  Report Type: Report from Study
  Country: US (occurrence: US)
  Receive Date: 20121128
  Receipt Date: 20121128
  Transmission Date: 20130627
  Serious: Yes (Hospitalization)
  Sender: FDA-Public Use
  Company Number: US-009507513-1211USA009876

PATIENT
  Age: 49 Year
  Sex: Male
  Weight: 81.1 kg

DRUGS (7)
  1. TEMODAR [Suspect]
     Indication: GLIOBLASTOMA
     Dosage: 150 mg, qd
     Route: 048
     Dates: start: 20100208, end: 20100325
  2. TEMODAR [Suspect]
     Dosage: 390 mg, 1 in 5 Days
     Route: 048
     Dates: start: 20100430, end: 20100504
  3. BEVACIZUMAB [Suspect]
     Indication: GLIOBLASTOMA
     Dosage: 811 mg, 1 in 2 weeks
     Route: 042
     Dates: start: 20100208, end: 20100322
  4. BEVACIZUMAB [Suspect]
     Dosage: 795 mg, 1 in 2 weeks
     Route: 042
     Dates: start: 20100430
  5. TOPOTECAN [Suspect]
     Indication: GLIOBLASTOMA
     Dosage: 30 mg, 1 in 5 D
     Route: 065
     Dates: start: 20100501, end: 20100505
  6. KEPPRA [Concomitant]
     Dosage: 500 mg, bid
  7. OMEPRAZOLE [Concomitant]
     Dosage: UNK, qd

REACTIONS (3)
  - Grand mal convulsion [Recovered/Resolved]
  - Subarachnoid haemorrhage [Recovered/Resolved]
  - Pyrexia [Recovered/Resolved]
